FAERS Safety Report 20819931 (Version 2)
Quarter: 2022Q2

REPORT INFORMATION
  Report Type: Spontaneous
  Country: US (occurrence: US)
  Receive Date: 20220512
  Receipt Date: 20220616
  Transmission Date: 20220721
  Serious: Yes (Death, Other)
  Sender: FDA-Public Use
  Company Number: US-JNJFOC-20220523238

PATIENT
  Age: 9 Decade
  Sex: Male

DRUGS (1)
  1. ZYTIGA [Suspect]
     Active Substance: ABIRATERONE ACETATE
     Indication: Prostate cancer
     Route: 048
     Dates: start: 201808

REACTIONS (4)
  - Death [Fatal]
  - Prostate cancer [Unknown]
  - Bladder cancer [Unknown]
  - Off label use [Unknown]
